FAERS Safety Report 20940650 (Version 1)
Quarter: 2022Q2

REPORT INFORMATION
  Report Type: Spontaneous
  Country: FR (occurrence: FR)
  Receive Date: 20220609
  Receipt Date: 20220609
  Transmission Date: 20220720
  Serious: Yes (Hospitalization)
  Sender: FDA-Public Use
  Company Number: FR-DSA - 58812 - 2012

PATIENT
  Age: 72 Year
  Sex: Female

DRUGS (6)
  1. DILTIAZEM HYDROCHLORIDE [Suspect]
     Active Substance: DILTIAZEM HYDROCHLORIDE
     Indication: Product used for unknown indication
     Route: 048
     Dates: start: 2007, end: 20120628
  2. DILTIAZEM HYDROCHLORIDE [Suspect]
     Active Substance: DILTIAZEM HYDROCHLORIDE
     Indication: Product used for unknown indication
     Route: 048
     Dates: start: 2007, end: 20120628
  3. DOLIPRANE [Suspect]
     Active Substance: ACETAMINOPHEN
     Indication: Product used for unknown indication
     Route: 048
  4. KARDEGIC [Suspect]
     Active Substance: ASPIRIN DL-LYSINE
     Indication: Product used for unknown indication
     Route: 048
     Dates: end: 2012
  5. STRONTIUM RANELATE [Suspect]
     Active Substance: STRONTIUM RANELATE
     Indication: Product used for unknown indication
     Dosage: DF
     Route: 048
     Dates: start: 201201, end: 20120626
  6. CHOLECALCIFEROL [Suspect]
     Active Substance: CHOLECALCIFEROL
     Indication: Product used for unknown indication
     Dosage: DF
     Route: 048

REACTIONS (2)
  - Mixed liver injury [Recovering/Resolving]
  - Hepatitis [Recovering/Resolving]

NARRATIVE: CASE EVENT DATE: 20120628
